FAERS Safety Report 4656128-4 (Version None)
Quarter: 2005Q2

REPORT INFORMATION
  Report Type: 
  Country: None (occurrence: None)
  Receive Date: 20050505
  Receipt Date: 20050428
  Transmission Date: 20051028
  Serious: Yes (Life-Threatening, Hospitalization)
  Sender: FDA-Public Use
  Company Number: 200510225BFR

PATIENT
  Age: 79 Year
  Sex: Male
  Weight: 110 kg

DRUGS (8)
  1. MOXIFLOXACIN HYDROCHLORIDE [Suspect]
     Indication: BRONCHITIS
  2. CORDARONE [Concomitant]
  3. PREVISCAN [Concomitant]
  4. ELISOR [Concomitant]
  5. DISCORTRINE [Concomitant]
  6. XANAX [Concomitant]
  7. ENANTONE [Concomitant]
  8. MOPRAL [Concomitant]

REACTIONS (4)
  - CARDIAC ARREST [None]
  - ELECTROCARDIOGRAM PR PROLONGATION [None]
  - FEAR [None]
  - SYNCOPE [None]
